FAERS Safety Report 8030323-9 (Version None)
Quarter: 2011Q4

REPORT INFORMATION
  Report Type: 
  Country: None (occurrence: None)
  Receive Date: 20111130
  Receipt Date: 20110622
  Transmission Date: 20120403
  Serious: Yes (Hospitalization, Other)
  Sender: FDA-Public Use
  Company Number: US200804004818

PATIENT
  Age: 68 Year
  Sex: Female

DRUGS (8)
  1. URSODIOL [Concomitant]
  2. BYETTA [Suspect]
     Indication: TYPE 2 DIABETES MELLITUS
     Dosage: 5, 2/D, SUBCUTANEOUS ; 10 UG, 2/D, SUBCUTANEOUS
     Route: 058
     Dates: start: 20060727
  3. BYETTA [Suspect]
     Indication: TYPE 2 DIABETES MELLITUS
     Dosage: 5, 2/D, SUBCUTANEOUS ; 10 UG, 2/D, SUBCUTANEOUS
     Route: 058
     Dates: end: 20080412
  4. PRAVACHOL [Concomitant]
  5. EXENATIDE 10MCG PEN, DISPOSABLE DEVICE (EXENATIDE PEN (10MCG)) PEN,DIS [Concomitant]
  6. METFORMIN HCL [Concomitant]
  7. GLYBURIDE [Concomitant]
  8. DIOVAN [Concomitant]

REACTIONS (4)
  - PANCREATITIS [None]
  - BLOOD GLUCOSE INCREASED [None]
  - OFF LABEL USE [None]
  - HAEMATEMESIS [None]
